FAERS Safety Report 9099229 (Version 1)
Quarter: 2013Q1

REPORT INFORMATION
  Report Type: Spontaneous
  Country: US (occurrence: US)
  Receive Date: 20130213
  Receipt Date: 20130213
  Transmission Date: 20140127
  Serious: Yes (Other)
  Sender: FDA-Public Use
  Company Number: PHHY2013US004404

PATIENT
  Sex: Male

DRUGS (1)
  1. GENTEAL MILD [Suspect]
     Indication: DRY EYE

REACTIONS (2)
  - Eye burns [Recovered/Resolved]
  - Product quality issue [None]
